FAERS Safety Report 5199898-1 (Version None)
Quarter: 2007Q1

REPORT INFORMATION
  Report Type: 
  Country: None (occurrence: None)
  Receive Date: 20070103
  Receipt Date: 20061219
  Transmission Date: 20070707
  Serious: Yes (Hospitalization)
  Sender: FDA-Public Use
  Company Number: GXKR2006US08314

PATIENT
  Age: 21 Year
  Sex: Male

DRUGS (3)
  1. AMITRIPTYLINE HCL [Suspect]
     Dosage: UNK, UNK, UNKNOWN
  2. FLUOXETINE [Suspect]
     Dosage: UNK, UNK, UNKNOWN
  3. HAWAIIAN BABY WOODROSE() [Suspect]
     Dosage: 8 SEEDS, ORAL
     Route: 048

REACTIONS (9)
  - BODY TEMPERATURE INCREASED [None]
  - DRUG INTERACTION [None]
  - DYSPNOEA [None]
  - HALLUCINATION [None]
  - HEART RATE INCREASED [None]
  - MYDRIASIS [None]
  - OXYGEN SATURATION DECREASED [None]
  - SEROTONIN SYNDROME [None]
  - TRISMUS [None]
